FAERS Safety Report 14355217 (Version 1)
Quarter: 2018Q1

REPORT INFORMATION
  Report Type: Spontaneous
  Country: US (occurrence: US)
  Receive Date: 20180104
  Receipt Date: 20180104
  Transmission Date: 20180509
  Serious: Yes (Hospitalization)
  Sender: FDA-Public Use
  Company Number: None

PATIENT
  Sex: Female

DRUGS (7)
  1. PROLENSA [Concomitant]
     Active Substance: BROMFENAC SODIUM
  2. TASIGNA [Suspect]
     Active Substance: NILOTINIB
     Indication: CHRONIC MYELOID LEUKAEMIA
     Route: 048
     Dates: start: 20160114
  3. ACTONEL [Concomitant]
     Active Substance: RISEDRONATE SODIUM
  4. LATANOPROST. [Concomitant]
     Active Substance: LATANOPROST
  5. LOSARTAN. [Concomitant]
     Active Substance: LOSARTAN
  6. PROAIR HFA [Concomitant]
     Active Substance: ALBUTEROL SULFATE
  7. METOPROLOL TARTRATE. [Concomitant]
     Active Substance: METOPROLOL TARTRATE

REACTIONS (2)
  - Asthenia [None]
  - Drug dose omission [None]
